FAERS Safety Report 24930055 (Version 1)
Quarter: 2025Q1

REPORT INFORMATION
  Report Type: Spontaneous
  Country: CH (occurrence: CH)
  Receive Date: 20250205
  Receipt Date: 20250205
  Transmission Date: 20250408
  Serious: Yes (Hospitalization, Other)
  Sender: BAYER HEALTHCARE PHARMACEUTICALS INC.
  Company Number: CH-BAYER-2024A178616

PATIENT
  Age: 60 Year
  Sex: Female
  Weight: 90 kg

DRUGS (15)
  1. ULTRAVIST [Suspect]
     Active Substance: IOPROMIDE
     Indication: Intra-cerebral aneurysm operation
     Route: 013
     Dates: start: 20241210, end: 20241210
  2. ULTRAVIST [Suspect]
     Active Substance: IOPROMIDE
     Indication: Intra-cerebral aneurysm operation
     Route: 013
     Dates: start: 20241210, end: 20241210
  3. ATORVASTATIN CALCIUM [Concomitant]
     Active Substance: ATORVASTATIN CALCIUM
     Route: 048
  4. BISOPROLOL MEPHA [Concomitant]
     Dosage: 1 DF, QD
     Route: 048
  5. TORSEMIDE [Concomitant]
     Active Substance: TORSEMIDE
     Route: 048
  6. PANTOZOL [Concomitant]
     Active Substance: PANTOPRAZOLE SODIUM
     Route: 048
  7. METAMIZOLE [Concomitant]
     Active Substance: METAMIZOLE
     Dosage: 2 DF, QID
     Route: 048
  8. MAGNESIUM ASPARTATE HYDROCHLORIDE [Concomitant]
     Active Substance: MAGNESIUM ASPARTATE HYDROCHLORIDE
     Dosage: 1 DF, TID
     Route: 048
  9. KEPPRA [Concomitant]
     Active Substance: LEVETIRACETAM
     Dosage: 1 DF, QD
  10. KEPPRA [Concomitant]
     Active Substance: LEVETIRACETAM
     Dosage: 1 DF, QD
     Route: 048
  11. ESCITALOPRAM OXALATE [Concomitant]
     Active Substance: ESCITALOPRAM OXALATE
     Dosage: 1 DF, QD
     Route: 048
  12. ASPIRIN [Concomitant]
     Active Substance: ASPIRIN
     Dosage: 1 DF, QD
     Route: 048
  13. PLAVIX [Concomitant]
     Active Substance: CLOPIDOGREL BISULFATE
     Dosage: 1 DF, QD
  14. Xarelto vascular 2.5 mg [Concomitant]
     Dosage: 1 DF, QD
  15. CANDESARTAN [Concomitant]
     Active Substance: CANDESARTAN
     Dosage: 1 DF, QD
     Route: 048

REACTIONS (8)
  - Contrast encephalopathy [Recovering/Resolving]
  - Neurotoxicity [Recovering/Resolving]
  - Confusional state [Recovering/Resolving]
  - Disorientation [Recovering/Resolving]
  - Cerebral disorder [Recovering/Resolving]
  - Aphasia [Recovering/Resolving]
  - Fatigue [Recovering/Resolving]
  - Embolic cerebral infarction [Recovering/Resolving]

NARRATIVE: CASE EVENT DATE: 20241210
